FAERS Safety Report 9028597 (Version 1)
Quarter: 2013Q1

REPORT INFORMATION
  Report Type: Spontaneous
  Country: RU (occurrence: RU)
  Receive Date: 20130124
  Receipt Date: 20130124
  Transmission Date: 20140127
  Serious: Yes (Other)
  Sender: FDA-Public Use
  Company Number: RU-VIIV HEALTHCARE LIMITED-B0861791A

PATIENT
  Sex: Female

DRUGS (3)
  1. COMBIVIR [Suspect]
     Indication: HIV INFECTION
     Route: 048
     Dates: start: 201212
  2. ETRAVIRINE [Suspect]
     Indication: HIV INFECTION
     Route: 048
  3. STOCRIN [Suspect]
     Indication: HIV INFECTION
     Route: 048

REACTIONS (3)
  - Lipodystrophy acquired [Not Recovered/Not Resolved]
  - Weight decreased [Unknown]
  - Abdominal distension [Unknown]
